FAERS Safety Report 7915230-1 (Version None)
Quarter: 2011Q4

REPORT INFORMATION
  Report Type: 
  Country: None (occurrence: None)
  Receive Date: 20111115
  Receipt Date: 20111102
  Transmission Date: 20120403
  Serious: Yes (Other)
  Sender: FDA-Public Use
  Company Number: US-ELI_LILLY_AND_COMPANY-US201111002388

PATIENT
  Sex: Female

DRUGS (1)
  1. CYMBALTA [Suspect]
     Indication: GENERALISED ANXIETY DISORDER
     Dosage: 60 MG, QD
     Dates: start: 20050101

REACTIONS (7)
  - WEIGHT DECREASED [None]
  - MOOD SWINGS [None]
  - OBESITY SURGERY [None]
  - IRRITABILITY [None]
  - DRUG LEVEL INCREASED [None]
  - THINKING ABNORMAL [None]
  - SLEEP APNOEA SYNDROME [None]
